FAERS Safety Report 17538820 (Version 2)
Quarter: 2020Q2

REPORT INFORMATION
  Report Type: Spontaneous
  Country: IT (occurrence: IT)
  Receive Date: 20200313
  Receipt Date: 20200424
  Transmission Date: 20200713
  Serious: Yes (Hospitalization)
  Sender: FDA-Public Use
  Company Number: IT-009507513-2003ITA003155

PATIENT
  Age: 79 Year
  Sex: Male
  Weight: 73 kg

DRUGS (5)
  1. ZANIPRIL [Concomitant]
     Active Substance: ENALAPRIL MALEATE\LERCANIDIPINE HYDROCHLORIDE
     Indication: HYPERTENSION
     Dosage: 20 MILLIGRAM
     Route: 048
     Dates: start: 20170101, end: 20200218
  2. DICLOREUM (DICLOFENAC SODIUM) [Interacting]
     Active Substance: DICLOFENAC SODIUM
     Indication: INTERVERTEBRAL DISC DISORDER
     Dosage: 150 MILLIGRAM, QD (STRENGTH: 75MG/3ML)
     Route: 030
     Dates: start: 20191017, end: 20191022
  3. PLAVIX [Interacting]
     Active Substance: CLOPIDOGREL BISULFATE
     Indication: CEREBROVASCULAR DISORDER
     Dosage: 75 MILLIGRAM, QD
     Route: 048
     Dates: start: 20191015, end: 20200218
  4. OMNIC [Concomitant]
     Active Substance: TAMSULOSIN HYDROCHLORIDE
     Indication: BENIGN PROSTATIC HYPERPLASIA
     Dosage: 0.4 MILLIGRAM
     Route: 048
  5. INEGY 10MG/20MG COMPRESSE [Suspect]
     Active Substance: EZETIMIBE\SIMVASTATIN
     Indication: HYPERCHOLESTEROLAEMIA
     Dosage: 10 MG, QD
     Route: 048

REACTIONS (1)
  - Rectal haemorrhage [Recovered/Resolved]

NARRATIVE: CASE EVENT DATE: 20191020
